FAERS Safety Report 8203826-1 (Version None)
Quarter: 2012Q1

REPORT INFORMATION
  Report Type: 
  Country: None (occurrence: None)
  Receive Date: 20120313
  Receipt Date: 20120229
  Transmission Date: 20120608
  Serious: Yes (Death)
  Sender: FDA-Public Use
  Company Number: JP-ELI_LILLY_AND_COMPANY-JP201109003816

PATIENT
  Age: 75 Year
  Sex: Male

DRUGS (2)
  1. FORTEO [Suspect]
     Indication: OSTEOPOROSIS
     Dosage: UNK
     Route: 058
     Dates: start: 20110901, end: 20110901
  2. FORTEO [Suspect]
     Dosage: UNK
     Route: 058

REACTIONS (4)
  - HEADACHE [None]
  - NAUSEA [None]
  - DEATH [None]
  - PYREXIA [None]
